FAERS Safety Report 8056421-1 (Version None)
Quarter: 2012Q1

REPORT INFORMATION
  Report Type: 
  Country: None (occurrence: None)
  Receive Date: 20120119
  Receipt Date: 20120109
  Transmission Date: 20120608
  Serious: Yes (Hospitalization, Other)
  Sender: FDA-Public Use
  Company Number: US-MERCK-1108USA01234

PATIENT
  Age: 64 Year
  Sex: Female

DRUGS (7)
  1. FOSAMAX [Suspect]
     Route: 048
     Dates: start: 20070905, end: 20080201
  2. FOSAMAX [Suspect]
     Route: 048
     Dates: start: 20020101, end: 20070101
  3. FOSAMAX [Suspect]
     Indication: OSTEOPOROSIS
     Route: 048
     Dates: start: 19970101, end: 20010101
  4. VITAMIN D (UNSPECIFIED) [Concomitant]
     Route: 065
     Dates: start: 19940101
  5. VITAMINS (UNSPECIFIED) [Concomitant]
     Route: 048
     Dates: start: 19940101
  6. CALCIUM (UNSPECIFIED) [Concomitant]
     Route: 065
     Dates: start: 19940101
  7. ALENDRONATE SODIUM [Suspect]
     Indication: OSTEOPOROSIS
     Route: 048
     Dates: start: 20080221, end: 20090101

REACTIONS (21)
  - LUNG DISORDER [None]
  - PELVIC FRACTURE [None]
  - RIB FRACTURE [None]
  - FALL [None]
  - PULMONARY FIBROSIS [None]
  - CARDIOMEGALY [None]
  - VITAMIN D DEFICIENCY [None]
  - CLAVICLE FRACTURE [None]
  - DEPRESSION [None]
  - PATHOLOGICAL FRACTURE [None]
  - INAPPROPRIATE SCHEDULE OF DRUG ADMINISTRATION [None]
  - FEMUR FRACTURE [None]
  - SOMNAMBULISM [None]
  - ATELECTASIS [None]
  - X-RAY ABNORMAL [None]
  - SCOLIOSIS [None]
  - TOOTH DISORDER [None]
  - OSTEOARTHRITIS [None]
  - ANXIETY [None]
  - X-RAY LIMB ABNORMAL [None]
  - FOOT FRACTURE [None]
